FAERS Safety Report 25943858 (Version 1)
Quarter: 2025Q4

REPORT INFORMATION
  Report Type: Report from Study
  Country: EU (occurrence: EU)
  Receive Date: 20251021
  Receipt Date: 20251021
  Transmission Date: 20260118
  Serious: Yes (Death, Life-Threatening, Hospitalization, Other)
  Sender: SANOFI AVENTIS
  Company Number: EU-SANOFI-AVENTIS-2013SA090426

PATIENT
  Age: 79 Year
  Sex: Male

DRUGS (7)
  1. CAPECITABINE [Suspect]
     Active Substance: CAPECITABINE
     Indication: Adenocarcinoma gastric
     Dosage: 800 MG/M2, QCY 800 MG/M2, QCY (DAYS 2?15) (WITH IN 30 MIN AFTER INGESTION OF FOOD, AND DIVIDED INTO
  2. DOCETAXEL [Suspect]
     Active Substance: DOCETAXEL
     Indication: Adenocarcinoma gastric
     Dosage: 30 MG/M2, QCY (DAYS 1, 8) (60-MIN IV INFUSION)
     Route: 041
  3. OXALIPLATIN [Suspect]
     Active Substance: OXALIPLATIN
     Indication: Adenocarcinoma gastric
     Dosage: 70 MG/M2, QCY (DAYS 1, 8) (60-MIN IV INFUSION)
     Route: 041
  4. CHLORPHENIRAMINE MALEATE [Concomitant]
     Active Substance: CHLORPHENIRAMINE MALEATE
     Indication: Premedication
     Dosage: 10 MG (GIVEN JUST BEFORE CHEMOTHERAPY ON DAYS 1 AND 8)
     Route: 042
  5. DEXAMETHASONE [Concomitant]
     Active Substance: DEXAMETHASONE
     Indication: Premedication
     Dosage: 12 MG (GIVEN JUST BEFORE CHEMOTHERAPY ON DAYS 1 AND 8)
     Route: 042
  6. PREDNISONE [Concomitant]
     Active Substance: PREDNISONE
     Indication: Premedication
     Dosage: 50 MG, BID (GIVEN THE DAY BEFORE, THE DAY OF, AND THE DAY AFTER CHEMOTHERAPY) (SIX DOSES IN TOTAL)
     Route: 048
  7. RANITIDINE [Concomitant]
     Active Substance: RANITIDINE
     Indication: Premedication
     Dosage: 50 MG (GIVEN JUST BEFORE CHEMOTHERAPY ON DAYS 1 AND 8)
     Route: 042

REACTIONS (8)
  - Gastrointestinal haemorrhage [Fatal]
  - Thrombocytopenia [Fatal]
  - Neutropenia [Fatal]
  - Pneumonia [Unknown]
  - Pyrexia [Unknown]
  - Cough [Unknown]
  - General physical health deterioration [Unknown]
  - Off label use [Unknown]
